FAERS Safety Report 8094604-5 (Version None)
Quarter: 2012Q1

REPORT INFORMATION
  Report Type: 
  Country: None (occurrence: None)
  Receive Date: 20120131
  Receipt Date: 20120124
  Transmission Date: 20120608
  Serious: Yes (Hospitalization)
  Sender: FDA-Public Use
  Company Number: FR-SANOFI-AVENTIS-2011SA046125

PATIENT
  Age: 53 Year
  Sex: Male

DRUGS (9)
  1. CITALOPRAM [Suspect]
     Route: 048
  2. KAYEXALATE [Suspect]
     Route: 048
     Dates: start: 20110603, end: 20110626
  3. PREDNISOLONE [Suspect]
     Route: 048
     Dates: start: 20110604, end: 20110627
  4. KEPPRA [Suspect]
     Route: 048
  5. EUPRESSYL [Suspect]
     Route: 048
     Dates: start: 20110529
  6. RAMIPRIL [Suspect]
     Route: 048
     Dates: start: 20110604, end: 20110614
  7. REPAGLINIDE [Suspect]
     Route: 048
     Dates: start: 20110603, end: 20110626
  8. ATORVASTATIN [Suspect]
     Route: 048
     Dates: start: 20110530, end: 20110614
  9. AMLODIPINE BESYLATE [Suspect]
     Route: 048

REACTIONS (1)
  - TUBULOINTERSTITIAL NEPHRITIS [None]
